FAERS Safety Report 16843560 (Version 1)
Quarter: 2019Q3

REPORT INFORMATION
  Report Type: Spontaneous
  Country: CA (occurrence: CA)
  Receive Date: 20190924
  Receipt Date: 20190924
  Transmission Date: 20191005
  Serious: Yes (Death)
  Sender: FDA-Public Use
  Company Number: CA-UNITED THERAPEUTICS-UNT-2019-015632

PATIENT
  Age: 66 Year
  Sex: Female

DRUGS (1)
  1. REMODULIN [Suspect]
     Active Substance: TREPROSTINIL
     Indication: PULMONARY ARTERIAL HYPERTENSION
     Dosage: 0.030 ML/H, CONTINUING
     Route: 058
     Dates: start: 20190423, end: 20190921

REACTIONS (1)
  - Death [Fatal]

NARRATIVE: CASE EVENT DATE: 20190921
